FAERS Safety Report 5044806-7 (Version None)
Quarter: 2006Q2

REPORT INFORMATION
  Report Type: 
  Country: None (occurrence: None)
  Receive Date: 20060601
  Receipt Date: 20060322
  Transmission Date: 20061013
  Serious: No
  Sender: FDA-Public Use
  Company Number: 2006-BP-02503BP

PATIENT
  Sex: Male

DRUGS (10)
  1. SPIRIVA [Suspect]
     Indication: ASBESTOSIS
     Dosage: 18 MCG (18 MCG), IH
     Route: 055
     Dates: start: 20040901
  2. SPIRIVA [Suspect]
     Indication: CHRONIC OBSTRUCTIVE PULMONARY DISEASE
     Dosage: 18 MCG (18 MCG), IH
     Route: 055
     Dates: start: 20040901
  3. PLAVIX [Concomitant]
     Indication: ASBESTOSIS
  4. ISOSORBIDE (ISOSORBIDE) [Concomitant]
  5. ASPIRIN [Concomitant]
  6. FISH OIL (FISH OIL) [Concomitant]
  7. FLOVENT [Concomitant]
  8. ALBUTEROL [Concomitant]
  9. OXYGEN (OXYGEN) [Concomitant]
  10. . [Concomitant]

REACTIONS (4)
  - COUGH [None]
  - HAEMOGLOBIN DECREASED [None]
  - OESOPHAGEAL DISCOMFORT [None]
  - PNEUMONIA [None]
